FAERS Safety Report 11189098 (Version 3)
Quarter: 2015Q3

REPORT INFORMATION
  Report Type: Spontaneous
  Country: US (occurrence: US)
  Receive Date: 20150615
  Receipt Date: 20150831
  Transmission Date: 20151125
  Serious: Yes (Other)
  Sender: FDA-Public Use
  Company Number: US-BEH-2015050953

PATIENT
  Age: 63 Year
  Sex: Female
  Weight: 88 kg

DRUGS (43)
  1. HIZENTRA [Suspect]
     Active Substance: HUMAN IMMUNOGLOBULIN G
     Indication: PRIMARY IMMUNODEFICIENCY SYNDROME
     Route: 058
     Dates: start: 20150507, end: 20150507
  2. VOLTAREN [Concomitant]
     Active Substance: DICLOFENAC SODIUM
     Dosage: 1%
     Route: 061
  3. AZITHROMYCIN [Concomitant]
     Active Substance: AZITHROMYCIN ANHYDROUS
     Dosage: QD
     Route: 048
  4. OSTEO BI-FLEX [Concomitant]
     Active Substance: CHONDROITIN SULFATE A\GLUCOSAMINE
     Dosage: 1500-400 MG
     Route: 048
  5. FLONASE ALLERGY RELIEF [Concomitant]
     Active Substance: FLUTICASONE PROPIONATE
     Dosage: 1 SPRAY UD
     Route: 045
  6. HYDROCORTISONE PRAMOXINE [Concomitant]
     Dosage: 1 % UD
     Route: 061
  7. THEOPHYLLINE ANHYDROUS. [Concomitant]
     Active Substance: THEOPHYLLINE ANHYDROUS
     Dosage: QD
     Route: 048
  8. SYMBICORT [Concomitant]
     Active Substance: BUDESONIDE\FORMOTEROL FUMARATE DIHYDRATE
     Dosage: 640-18 MCG, 2 PUFFS BID
     Route: 055
  9. NORCO [Concomitant]
     Active Substance: ACETAMINOPHEN\HYDROCODONE BITARTRATE
     Indication: PREMEDICATION
     Dosage: Q6HP 10 MG-325 MG
     Route: 048
  10. HIZENTRA [Suspect]
     Active Substance: HUMAN IMMUNOGLOBULIN G
     Route: 058
     Dates: start: 20150402, end: 20150402
  11. HIZENTRA [Suspect]
     Active Substance: HUMAN IMMUNOGLOBULIN G
     Indication: IMMUNODEFICIENCY COMMON VARIABLE
     Dosage: 5 SITES
     Route: 058
     Dates: start: 20150417, end: 20150417
  12. HIZENTRA [Suspect]
     Active Substance: HUMAN IMMUNOGLOBULIN G
     Dosage: STARTED IN APRIL, 5 SITES
     Route: 058
     Dates: start: 20150428, end: 20150428
  13. HIZENTRA [Suspect]
     Active Substance: HUMAN IMMUNOGLOBULIN G
     Dosage: 5 SITES
     Route: 058
     Dates: start: 20150425, end: 20150425
  14. EPIPEN [Concomitant]
     Active Substance: EPINEPHRINE
     Indication: ANAPHYLACTIC REACTION
     Route: 030
  15. IPRATROPIUM BROMIDE. [Concomitant]
     Active Substance: IPRATROPIUM BROMIDE
     Dosage: 126 MCG DAILY DOSE
     Route: 045
  16. ZOFRAN [Concomitant]
     Active Substance: ONDANSETRON HYDROCHLORIDE
     Indication: PREMEDICATION
     Route: 048
  17. ASPIRIN EC [Concomitant]
     Active Substance: ASPIRIN
     Route: 048
  18. NORCO [Concomitant]
     Active Substance: ACETAMINOPHEN\HYDROCODONE BITARTRATE
     Indication: PAIN
     Dosage: Q6HP 10 MG-325 MG
     Route: 048
  19. HIZENTRA [Suspect]
     Active Substance: HUMAN IMMUNOGLOBULIN G
     Indication: HYPER IGM SYNDROME
     Dosage: 5 SITES
     Route: 058
     Dates: start: 20150412, end: 20150412
  20. HIZENTRA [Suspect]
     Active Substance: HUMAN IMMUNOGLOBULIN G
     Dosage: STARTED IN APRIL, 5 SITES
     Route: 058
     Dates: start: 20150428, end: 20150428
  21. OMEPRAZOLE DR [Concomitant]
     Active Substance: OMEPRAZOLE
     Dosage: 1 CAP UD
     Route: 048
  22. ACETAMINOPHEN. [Concomitant]
     Active Substance: ACETAMINOPHEN
     Dosage: UD
     Route: 048
  23. ZOFRAN [Concomitant]
     Active Substance: ONDANSETRON HYDROCHLORIDE
     Indication: NAUSEA
     Route: 048
  24. ATENOLOL. [Concomitant]
     Active Substance: ATENOLOL
     Route: 048
  25. BENADRYL [Concomitant]
     Active Substance: DIPHENHYDRAMINE HYDROCHLORIDE
     Indication: PREMEDICATION
     Dosage: 25 MG
     Route: 048
  26. TESSALON [Concomitant]
     Active Substance: BENZONATATE
     Dosage: 2 CAPS UD
     Route: 048
  27. XANAX [Concomitant]
     Active Substance: ALPRAZOLAM
     Indication: ANXIETY
     Route: 048
  28. PREDNISONE. [Concomitant]
     Active Substance: PREDNISONE
     Route: 048
  29. VITAMIN C [Concomitant]
     Active Substance: ASCORBIC ACID
     Route: 048
  30. HIZENTRA [Suspect]
     Active Substance: HUMAN IMMUNOGLOBULIN G
     Dosage: STARTED IN APRIL
     Route: 058
     Dates: start: 20150428, end: 20150428
  31. FLUCONAZOLE. [Concomitant]
     Active Substance: FLUCONAZOLE
     Dosage: 1 TAB UD
     Route: 048
  32. ZANTAC [Concomitant]
     Active Substance: RANITIDINE HYDROCHLORIDE
     Route: 048
  33. LIDOCAINE. [Concomitant]
     Active Substance: LIDOCAINE
     Indication: ARTHRALGIA
     Route: 061
  34. MENEST [Concomitant]
     Active Substance: ESTROGENS, ESTERIFIED
     Route: 048
  35. LIDOCAINE. [Concomitant]
     Active Substance: LIDOCAINE
     Indication: PREMEDICATION
     Dosage: 4%
     Route: 061
  36. PRILOSEC [Concomitant]
     Active Substance: OMEPRAZOLE MAGNESIUM
     Route: 048
  37. IMODIUM MULTI-SYMPTOM RELIEF [Concomitant]
     Active Substance: DIMETHICONE\LOPERAMIDE HYDROCHLORIDE
     Dosage: 1 TAB
     Route: 048
  38. VITAMIN D2 [Concomitant]
     Active Substance: ERGOCALCIFEROL
     Dosage: QW
     Route: 048
  39. DIPHENHYDRAMINE. [Concomitant]
     Active Substance: DIPHENHYDRAMINE
     Dosage: UD
     Route: 048
  40. TESSALON [Concomitant]
     Active Substance: BENZONATATE
     Indication: COUGH
     Dosage: TIDP
     Route: 048
  41. VALIUM [Concomitant]
     Active Substance: DIAZEPAM
     Indication: ANXIETY
     Route: 048
  42. SPIRIVA [Concomitant]
     Active Substance: TIOTROPIUM BROMIDE MONOHYDRATE
     Route: 055
  43. PROAIR HFA [Concomitant]
     Active Substance: ALBUTEROL SULFATE
     Dosage: 2 PUFFS PRN
     Route: 055

REACTIONS (5)
  - Musculoskeletal stiffness [Recovered/Resolved]
  - Headache [Recovered/Resolved]
  - Nausea [Recovered/Resolved]
  - Chills [Recovered/Resolved]
  - Meningitis aseptic [Recovered/Resolved]

NARRATIVE: CASE EVENT DATE: 20150507
